FAERS Safety Report 6946263-X (Version None)
Quarter: 2010Q3

REPORT INFORMATION
  Report Type: 
  Country: None (occurrence: None)
  Receive Date: 20100827
  Receipt Date: 20100818
  Transmission Date: 20110219
  Serious: Yes (Death, Other)
  Sender: FDA-Public Use
  Company Number: US-AMGEN-QUU422379

PATIENT
  Sex: Male
  Weight: 73.5 kg

DRUGS (21)
  1. NPLATE [Suspect]
     Indication: IDIOPATHIC THROMBOCYTOPENIC PURPURA
     Route: 058
     Dates: start: 20081021
  2. REGLAN [Concomitant]
     Route: 048
  3. ZANTAC [Concomitant]
  4. LOPRESSOR [Concomitant]
     Route: 048
  5. ACTOS [Concomitant]
     Route: 048
  6. ZOLOFT [Concomitant]
     Route: 048
  7. LANOXIN [Concomitant]
     Route: 048
  8. REMERON [Concomitant]
     Route: 048
  9. ZINC SULFATE [Concomitant]
     Route: 048
  10. MULTIPLE VITAMINS [Concomitant]
     Route: 048
  11. CITRACAL PLUS D [Concomitant]
     Route: 048
     Dates: start: 20080317
  12. IRON [Concomitant]
     Route: 048
     Dates: start: 20080606
  13. ASCORBIC ACID [Concomitant]
     Route: 048
     Dates: start: 20080923
  14. PERCOCET [Concomitant]
     Route: 048
  15. VICODIN [Concomitant]
     Route: 048
     Dates: start: 20090513
  16. PANTOPRAZOLE SODIUM [Concomitant]
     Route: 048
     Dates: start: 20090803
  17. KAPIDEX [Concomitant]
     Route: 048
     Dates: start: 20091026
  18. SYNTHROID [Concomitant]
     Route: 048
  19. UNSPECIFIED ANTINEOPLASTIC AGENT [Concomitant]
  20. PROCRIT [Concomitant]
     Indication: ANAEMIA
     Dates: start: 20080401
  21. INFED [Concomitant]
     Dates: start: 20060104

REACTIONS (12)
  - ABDOMINAL PAIN [None]
  - ASTHENIA [None]
  - BODY TEMPERATURE INCREASED [None]
  - CHILLS [None]
  - DIARRHOEA [None]
  - FATIGUE [None]
  - HIP FRACTURE [None]
  - IDIOPATHIC THROMBOCYTOPENIC PURPURA [None]
  - MUSCULOSKELETAL CHEST PAIN [None]
  - NAUSEA [None]
  - PAIN IN EXTREMITY [None]
  - VOMITING [None]
